FAERS Safety Report 9407865 (Version 1)
Quarter: 2013Q3

REPORT INFORMATION
  Report Type: Spontaneous
  Country: FR (occurrence: FR)
  Receive Date: 20130718
  Receipt Date: 20130718
  Transmission Date: 20140515
  Serious: Yes (Hospitalization)
  Sender: FDA-Public Use
  Company Number: FR-ELI_LILLY_AND_COMPANY-FR201307003695

PATIENT
  Age: 55 Year
  Sex: Female

DRUGS (6)
  1. ALIMTA [Suspect]
     Dosage: 750 MG, UNKNOWN
     Route: 042
     Dates: start: 20130304, end: 20130304
  2. CISPLATINE [Suspect]
     Dosage: 113 MG, UNKNOWN
     Route: 042
     Dates: start: 20130304, end: 20130304
  3. SIMVASTATINE [Concomitant]
     Dosage: UNK
     Route: 048
  4. CETIRIZINE [Concomitant]
     Dosage: 10 MG, QD
     Route: 048
  5. LEXOMIL [Concomitant]
     Dosage: 3 MG, UNKNOWN
     Route: 048
  6. LUTENYL [Concomitant]
     Dosage: 5 MG, QD
     Route: 048

REACTIONS (3)
  - Respiratory distress [Recovered/Resolved]
  - Interstitial lung disease [Recovered/Resolved]
  - Cholestasis [Recovering/Resolving]
